FAERS Safety Report 8384786-X (Version None)
Quarter: 2012Q2

REPORT INFORMATION
  Report Type: 
  Country: None (occurrence: None)
  Receive Date: 20120524
  Receipt Date: 20120516
  Transmission Date: 20120825
  Serious: Yes (Other)
  Sender: FDA-Public Use
  Company Number: US-JNJFOC-20120516479

PATIENT
  Sex: Female

DRUGS (1)
  1. MYLANTA ULTIMATE STRENGTH CHEWABLE TABLET CHERRY [Suspect]
     Indication: PRODUCT USED FOR UNKNOWN INDICATION
     Route: 048

REACTIONS (3)
  - OESOPHAGEAL CARCINOMA [None]
  - PRODUCT QUALITY ISSUE [None]
  - INTENTIONAL DRUG MISUSE [None]
